FAERS Safety Report 6208860-9 (Version None)
Quarter: 2009Q2

REPORT INFORMATION
  Report Type: 
  Country: None (occurrence: None)
  Receive Date: 20090529
  Receipt Date: 20090521
  Transmission Date: 20091009
  Serious: Yes (Hospitalization)
  Sender: FDA-Public Use
  Company Number: A0786546A

PATIENT
  Age: 71 Year
  Sex: Male

DRUGS (1)
  1. COREG [Suspect]
     Indication: DRUG USE FOR UNKNOWN INDICATION

REACTIONS (4)
  - ATRIAL FIBRILLATION [None]
  - BLOOD MAGNESIUM DECREASED [None]
  - COLITIS [None]
  - RED BLOOD CELL COUNT DECREASED [None]
